FAERS Safety Report 10687359 (Version 5)
Quarter: 2015Q2

REPORT INFORMATION
  Report Type: Report from Study
  Country: CA (occurrence: CA)
  Receive Date: 20150102
  Receipt Date: 20150519
  Transmission Date: 20150821
  Serious: Yes (Other)
  Sender: FDA-Public Use
  Company Number: PHHY2013CA130024

PATIENT
  Age: 65 Year
  Sex: Female

DRUGS (3)
  1. SANDOSTATIN LAR DEPOT [Suspect]
     Active Substance: OCTREOTIDE ACETATE
     Indication: ACROMEGALY
     Dosage: 30 MG, EVERY TWO WEEKS
     Route: 030
     Dates: start: 20050609
  2. SANDOSTATIN LAR DEPOT [Suspect]
     Active Substance: OCTREOTIDE ACETATE
     Dosage: 30 MG, EVERY TWO WEEKS
     Route: 030
  3. SANDOSTATIN LAR DEPOT [Suspect]
     Active Substance: OCTREOTIDE ACETATE
     Dosage: 30 MG, QMO
     Route: 030

REACTIONS (37)
  - Duodenal ulcer [Unknown]
  - Proctalgia [Unknown]
  - Diabetes mellitus [Unknown]
  - Pain [Unknown]
  - Musculoskeletal discomfort [Unknown]
  - Arthralgia [Recovering/Resolving]
  - Urinary incontinence [Unknown]
  - Dizziness [Recovered/Resolved]
  - Limb discomfort [Unknown]
  - Decreased appetite [Unknown]
  - Frustration [Unknown]
  - Weight decreased [Unknown]
  - Headache [Recovered/Resolved]
  - Helicobacter infection [Unknown]
  - Rectal polyp [Unknown]
  - Polyp [Unknown]
  - Intestinal haemorrhage [Unknown]
  - Exostosis [Unknown]
  - Peripheral swelling [Unknown]
  - Needle issue [Unknown]
  - Underdose [Unknown]
  - Malaise [Unknown]
  - Injection site discomfort [Unknown]
  - Change of bowel habit [Unknown]
  - Arthritis [Unknown]
  - Peripheral coldness [Unknown]
  - Abdominal discomfort [Unknown]
  - Thyroid disorder [Unknown]
  - Contusion [Unknown]
  - Full blood count decreased [Unknown]
  - Abdominal pain upper [Unknown]
  - Urinary tract infection [Unknown]
  - Haemorrhage [Unknown]
  - Joint swelling [Unknown]
  - Musculoskeletal pain [Unknown]
  - Jaundice [Not Recovered/Not Resolved]
  - Blood glucose decreased [Unknown]

NARRATIVE: CASE EVENT DATE: 2014
